FAERS Safety Report 9099486 (Version 1)
Quarter: 2013Q1

REPORT INFORMATION
  Report Type: Spontaneous
  Country: US (occurrence: US)
  Receive Date: 20130214
  Receipt Date: 20130214
  Transmission Date: 20140127
  Serious: Yes (Other)
  Sender: FDA-Public Use
  Company Number: US-009507513-98081878

PATIENT
  Age: 62 Year
  Sex: Female
  Weight: 79.38 kg

DRUGS (1)
  1. SINGULAIR [Suspect]
     Dosage: 10 MG, UNK
     Route: 048

REACTIONS (2)
  - Pruritus [Recovered/Resolved]
  - Dermatitis bullous [Recovered/Resolved]
